FAERS Safety Report 11249918 (Version 1)
Quarter: 2015Q3

REPORT INFORMATION
  Report Type: Spontaneous
  Country: US (occurrence: US)
  Receive Date: 20150708
  Receipt Date: 20150708
  Transmission Date: 20151125
  Serious: No
  Sender: FDA-Public Use
  Company Number: US-ELI_LILLY_AND_COMPANY-US200911003891

PATIENT
  Age: 17 Year
  Sex: Male

DRUGS (1)
  1. SYMBYAX [Suspect]
     Active Substance: FLUOXETINE HYDROCHLORIDE\OLANZAPINE
     Indication: SOCIAL PROBLEM
     Dosage: 1 D/F, UNK
     Dates: start: 200910

REACTIONS (2)
  - Drug screen positive [Unknown]
  - Off label use [Unknown]

NARRATIVE: CASE EVENT DATE: 2009
